FAERS Safety Report 5926764-3 (Version None)
Quarter: 2008Q4

REPORT INFORMATION
  Report Type: 
  Country: None (occurrence: None)
  Receive Date: 20081022
  Receipt Date: 20081017
  Transmission Date: 20090506
  Serious: Yes (Life-Threatening)
  Sender: FDA-Public Use
  Company Number: JP-JNJFOC-20081001310

PATIENT
  Age: 66 Year
  Sex: Male

DRUGS (4)
  1. RISPERDAL [Suspect]
     Indication: RESTLESSNESS
     Route: 048
  2. TIAPRIDE HYDROCHLORIDE [Suspect]
     Indication: RESTLESSNESS
     Route: 048
  3. TRAZODONE HCL [Suspect]
     Route: 048
  4. TRAZODONE HCL [Suspect]
     Indication: RESTLESSNESS
     Route: 048

REACTIONS (1)
  - TORSADE DE POINTES [None]
